FAERS Safety Report 8681281 (Version 3)
Quarter: 2013Q4

REPORT INFORMATION
  Report Type: Spontaneous
  Country: ES (occurrence: ES)
  Receive Date: 20120725
  Receipt Date: 20131101
  Transmission Date: 20140711
  Serious: Yes (Death, Life-Threatening)
  Sender: FDA-Public Use
  Company Number: ES-009507513-1207ESP006414

PATIENT
  Age: 64 Year
  Sex: Male

DRUGS (2)
  1. ESMERON [Suspect]
     Indication: ARRHYTHMIA
     Dosage: UNK
     Dates: start: 20100603, end: 20100603
  2. ESMOLOL HYDROCHLORIDE [Suspect]
     Indication: ARRHYTHMIA

REACTIONS (3)
  - Multi-organ failure [Fatal]
  - Respiratory arrest [Fatal]
  - Product name confusion [Fatal]
